FAERS Safety Report 7148156-4 (Version None)
Quarter: 2010Q4

REPORT INFORMATION
  Report Type: 
  Country: None (occurrence: None)
  Receive Date: 20101209
  Receipt Date: 20101126
  Transmission Date: 20110411
  Serious: Yes (Hospitalization, Other)
  Sender: FDA-Public Use
  Company Number: US-ELI_LILLY_AND_COMPANY-US201007004763

PATIENT
  Sex: Female

DRUGS (16)
  1. FORTEO [Suspect]
     Indication: OSTEOPOROSIS
     Dosage: 20 UG, DAILY (1/D)
     Dates: start: 20100623, end: 20100626
  2. MULTAQ [Concomitant]
     Dosage: 400 MG, 2/D
  3. INDAPAMIDE [Concomitant]
     Dosage: 1.25 MG, QOD
  4. INDAPAMIDE [Concomitant]
     Dosage: 1.25 MG, DAILY (1/D)
  5. WARFARIN SODIUM [Concomitant]
     Indication: ATRIAL FIBRILLATION
     Dosage: 4 MG, DAILY (1/D)
  6. LISINOPRIL [Concomitant]
     Indication: HYPERTENSION
     Dosage: 20 MG, 2/D
  7. SIMVASTATIN [Concomitant]
     Indication: BLOOD CHOLESTEROL INCREASED
     Dosage: 40 MG, DAILY (1/D)
  8. ALPRAZOLAM [Concomitant]
     Dosage: 0.25 MG, 2/D
  9. CALTRATE +D [Concomitant]
     Dosage: 600/400 D/F, 2/D
  10. FISH OIL [Concomitant]
     Dosage: 1000 MG, DAILY (1/D)
  11. MULTI-VITAMINS [Concomitant]
     Dosage: 1 D/F, DAILY (1/D)
  12. VITAMIN D [Concomitant]
     Dosage: 50000 U, MONTHLY (1/M)
  13. TRIAMCINOLONE ACETONIDE [Concomitant]
     Indication: PSORIASIS
     Dosage: 0.1 %, 2/D
     Route: 061
  14. TACLONEX [Concomitant]
     Indication: PSORIASIS
     Dosage: 1 D/F, DAILY (1/D)
  15. VITAMIN B-12 [Concomitant]
     Dosage: UNK, QOD
  16. VITAMIN E [Concomitant]
     Dosage: 400 IU, DAILY (1/D)

REACTIONS (11)
  - ADVERSE DRUG REACTION [None]
  - BONE DISORDER [None]
  - FEELING ABNORMAL [None]
  - HEADACHE [None]
  - HYPERTENSION [None]
  - HYPOAESTHESIA [None]
  - INSOMNIA [None]
  - INTERVERTEBRAL DISC DISORDER [None]
  - MALAISE [None]
  - PAIN [None]
  - URINARY TRACT INFECTION [None]
